FAERS Safety Report 5336091-3 (Version None)
Quarter: 2007Q2

REPORT INFORMATION
  Report Type: 
  Country: None (occurrence: None)
  Receive Date: 20070308
  Receipt Date: 20060626
  Transmission Date: 20071010
  Serious: Yes (Life-Threatening)
  Sender: FDA-Public Use
  Company Number: 06H-163-0308547-00

PATIENT
  Sex: Female

DRUGS (4)
  1. FENTANYL CITRATE [Suspect]
     Indication: ANAESTHESIA
     Dosage: INTRAVENOUS
     Route: 042
     Dates: start: 20060623, end: 20060623
  2. VERSED [Concomitant]
  3. PROMETHAZINE HCL [Concomitant]
  4. DECADRON [Concomitant]

REACTIONS (1)
  - APNOEA [None]
